APPROVED DRUG PRODUCT: TRIVARIS
Active Ingredient: TRIAMCINOLONE ACETONIDE
Strength: 8MG/0.1ML (8MG/0.1ML) **Federal Register determination that product was not discontinued or withdrawn for safety or effectiveness reasons**
Dosage Form/Route: INJECTABLE;INTRA-ARTICULAR, INTRAMUSCULAR, INTRAVITREAL
Application: N022220 | Product #001
Applicant: ALLERGAN INC
Approved: Jun 16, 2008 | RLD: Yes | RS: No | Type: DISCN